FAERS Safety Report 9542688 (Version 1)
Quarter: 2013Q3

REPORT INFORMATION
  Report Type: Report from Study
  Country: JP (occurrence: JP)
  Receive Date: 20130923
  Receipt Date: 20130923
  Transmission Date: 20140515
  Serious: Yes (Other)
  Sender: FDA-Public Use
  Company Number: JP-TAKEDA-2013TJP000965

PATIENT
  Age: 93 Year
  Sex: Male
  Weight: 55 kg

DRUGS (6)
  1. LANSOPRAZOLE [Suspect]
     Indication: PROPHYLAXIS AGAINST GASTROINTESTINAL ULCER
     Dosage: 15 MG, QD
     Route: 048
     Dates: start: 20120613
  2. BAYASPIRIN [Concomitant]
     Indication: THROMBOSIS PROPHYLAXIS
     Route: 048
     Dates: start: 20120613
  3. BROTIZOLAM M [Concomitant]
     Route: 048
  4. GASLON N [Concomitant]
     Route: 048
  5. MAGNESIUM OXIDE [Concomitant]
     Route: 048
  6. LAC-B N [Concomitant]
     Route: 048

REACTIONS (1)
  - Cardiac failure [Recovered/Resolved]
